FAERS Safety Report 12696279 (Version 1)
Quarter: 2016Q3

REPORT INFORMATION
  Report Type: Report from Study
  Country: US (occurrence: US)
  Receive Date: 20160830
  Receipt Date: 20160830
  Transmission Date: 20161109
  Serious: Yes (Other)
  Sender: FDA-Public Use
  Company Number: US-AMGEN-USASL2016112299

PATIENT
  Age: 66 Year
  Sex: Male

DRUGS (2)
  1. ENBREL [Suspect]
     Active Substance: ETANERCEPT
     Indication: PRODUCT USED FOR UNKNOWN INDICATION
     Dosage: UNK
     Route: 065
  2. ENBREL [Suspect]
     Active Substance: ETANERCEPT
     Dosage: UNK
     Route: 065

REACTIONS (11)
  - Musculoskeletal stiffness [Recovering/Resolving]
  - Diabetes mellitus [Unknown]
  - Wrong technique in product usage process [Unknown]
  - Arthropathy [Unknown]
  - Fatigue [Unknown]
  - Oedema [Unknown]
  - Skin ulcer [Unknown]
  - Arthritis [Unknown]
  - Unevaluable event [Unknown]
  - Underdose [Unknown]
  - Hypokinesia [Unknown]

NARRATIVE: CASE EVENT DATE: 2014
